FAERS Safety Report 25117534 (Version 1)
Quarter: 2025Q1

REPORT INFORMATION
  Report Type: Spontaneous
  Country: CA (occurrence: CA)
  Receive Date: 20250325
  Receipt Date: 20250325
  Transmission Date: 20250408
  Serious: Yes (Other)
  Sender: SERVIER
  Company Number: None

PATIENT

DRUGS (5)
  1. ONCASPAR [Suspect]
     Active Substance: PEGASPARGASE
     Indication: Nervous system disorder
     Route: 065
  2. ONDANSETRON [Concomitant]
     Active Substance: ONDANSETRON
     Indication: Product used for unknown indication
     Route: 065
  3. METHOTREXATE [Concomitant]
     Active Substance: METHOTREXATE
     Indication: Product used for unknown indication
     Route: 065
  4. CYTARABINE [Concomitant]
     Active Substance: CYTARABINE
     Indication: Product used for unknown indication
     Route: 065
  5. HYDROCORTISONE [Concomitant]
     Active Substance: HYDROCORTISONE
     Indication: Product used for unknown indication
     Route: 065

REACTIONS (15)
  - Angioedema [Unknown]
  - Capillary nail refill test abnormal [Unknown]
  - Back pain [Unknown]
  - Rash erythematous [Unknown]
  - Peripheral coldness [Unknown]
  - Pallor [Unknown]
  - Nausea [Unknown]
  - Lip swelling [Unknown]
  - Hypotension [Unknown]
  - Tachycardia [Unknown]
  - Swelling face [Unknown]
  - Slow speech [Unknown]
  - Type III immune complex mediated reaction [Unknown]
  - Vasoconstriction [Unknown]
  - Vomiting [Unknown]
